FAERS Safety Report 7198476-2 (Version None)
Quarter: 2010Q4

REPORT INFORMATION
  Report Type: 
  Country: None (occurrence: None)
  Receive Date: 20101223
  Receipt Date: 20101223
  Transmission Date: 20110411
  Serious: No
  Sender: FDA-Public Use
  Company Number: None

PATIENT
  Age: 48 Year
  Weight: 86.1834 kg

DRUGS (2)
  1. XOLAIR [Suspect]
     Indication: ASTHMA
     Dosage: 350 ONCE A MONTH IM
     Route: 030
     Dates: start: 20080902, end: 20100118
  2. XOLAIR [Suspect]
     Indication: ASTHMA
     Dosage: 350 ONCE A MONTH IM
     Route: 030
     Dates: start: 20080913, end: 20100118

REACTIONS (2)
  - CAROTID ARTERY OCCLUSION [None]
  - CEREBROVASCULAR ACCIDENT [None]
